FAERS Safety Report 9329651 (Version 1)
Quarter: 2013Q2

REPORT INFORMATION
  Report Type: Spontaneous
  Country: US (occurrence: US)
  Receive Date: 20130604
  Receipt Date: 20130604
  Transmission Date: 20140414
  Serious: No
  Sender: FDA-Public Use
  Company Number: US-SANOFI-AVENTIS-2013SA032066

PATIENT
  Age: 74 Year
  Sex: Female

DRUGS (2)
  1. LANTUS SOLOSTAR [Suspect]
     Indication: DIABETES MELLITUS
     Dosage: PRODUCT START DATE- LONG TIME?DOSE-50UNITS IN AM/ 50UNITS IN PM
     Route: 065
  2. SOLOSTAR [Suspect]

REACTIONS (3)
  - Pollakiuria [Unknown]
  - Injection site pain [Unknown]
  - Injection site pain [Unknown]
